FAERS Safety Report 14845938 (Version 1)
Quarter: 2018Q2

REPORT INFORMATION
  Report Type: Spontaneous
  Country: FR (occurrence: FR)
  Receive Date: 20180504
  Receipt Date: 20180504
  Transmission Date: 20180711
  Serious: Yes (Other)
  Sender: FDA-Public Use
  Company Number: FR-MERCK KGAA-2047175

PATIENT
  Age: 56 Year
  Sex: Female

DRUGS (1)
  1. NOVOTHYROX [Suspect]
     Active Substance: LEVOTHYROXINE SODIUM
     Indication: AUTOIMMUNE THYROIDITIS
     Dates: start: 201704

REACTIONS (15)
  - Blood triglycerides increased [None]
  - Decreased interest [None]
  - Blood cholesterol increased [None]
  - Vertigo [Recovering/Resolving]
  - Loss of personal independence in daily activities [None]
  - Gamma-glutamyltransferase increased [None]
  - Gastrointestinal disorder [Recovering/Resolving]
  - Disturbance in attention [None]
  - Sleep disorder [None]
  - Gait disturbance [None]
  - Fall [None]
  - Alanine aminotransferase [None]
  - Hand fracture [Recovering/Resolving]
  - Alopecia [Recovering/Resolving]
  - Apathy [None]

NARRATIVE: CASE EVENT DATE: 20170411
